FAERS Safety Report 4753020-1 (Version None)
Quarter: 2005Q3

REPORT INFORMATION
  Report Type: 
  Country: None (occurrence: None)
  Receive Date: 20050826
  Receipt Date: 20050718
  Transmission Date: 20060218
  Serious: Yes (Disabling, Other)
  Sender: FDA-Public Use
  Company Number: US-MERCK-0507USA03075

PATIENT
  Age: 50 Year
  Sex: Male
  Weight: 64 kg

DRUGS (3)
  1. VIOXX [Suspect]
     Indication: NEURITIS
     Route: 048
     Dates: start: 19990101, end: 20030811
  2. ZOLOFT [Concomitant]
     Route: 065
  3. MAVIK [Concomitant]
     Route: 065

REACTIONS (2)
  - CEREBROVASCULAR ACCIDENT [None]
  - MYOCARDIAL INFARCTION [None]
